FAERS Safety Report 7076046-4 (Version None)
Quarter: 2010Q4

REPORT INFORMATION
  Report Type: 
  Country: None (occurrence: None)
  Receive Date: 20101101
  Receipt Date: 20101022
  Transmission Date: 20110411
  Serious: Yes (Hospitalization)
  Sender: FDA-Public Use
  Company Number: US-BIOGENIDEC-2010BI021427

PATIENT
  Age: 24 Year
  Sex: Female

DRUGS (3)
  1. AVONEX [Suspect]
     Indication: MULTIPLE SCLEROSIS
     Route: 030
     Dates: start: 20010925, end: 20031001
  2. AVONEX [Suspect]
     Route: 030
     Dates: start: 20050701, end: 20050701
  3. AVONEX [Suspect]
     Route: 030
     Dates: start: 20081201, end: 20100701

REACTIONS (3)
  - BALANCE DISORDER [None]
  - DYSSTASIA [None]
  - MULTIPLE SCLEROSIS RELAPSE [None]
